FAERS Safety Report 4621961-1 (Version None)
Quarter: 2005Q1

REPORT INFORMATION
  Report Type: 
  Country: None (occurrence: None)
  Receive Date: 20050329
  Receipt Date: 20050323
  Transmission Date: 20050727
  Serious: Yes (Hospitalization, Disabling)
  Sender: FDA-Public Use
  Company Number: US-MERCK-0503USA04454

PATIENT
  Age: 82 Year
  Sex: Female

DRUGS (3)
  1. FOSAMAX [Suspect]
     Indication: OSTEOPOROSIS
     Route: 048
     Dates: start: 20040101
  2. FOSAMAX [Suspect]
     Route: 048
     Dates: start: 19910101, end: 20040101
  3. MOBIC [Concomitant]
     Route: 065

REACTIONS (2)
  - FEMORAL NECK FRACTURE [None]
  - FEMUR FRACTURE [None]
